FAERS Safety Report 9173522 (Version 2)
Quarter: 2013Q2

REPORT INFORMATION
  Report Type: Spontaneous
  Country: IT (occurrence: None)
  Receive Date: 20130314
  Receipt Date: 20130419
  Transmission Date: 20140414
  Serious: Yes (Hospitalization)
  Sender: FDA-Public Use
  Company Number: VAL_02212_2013

PATIENT
  Age: 39 Year
  Sex: Female

DRUGS (1)
  1. PARLODEL (PARLODEL-BROMOCRIPTINE MESILATE) 2.5 MG [Suspect]
     Indication: PRODUCT USED FOR UNKNOWN INDICATION
     Route: 048
     Dates: start: 20120914, end: 20120914

REACTIONS (2)
  - Nausea [None]
  - Presyncope [None]
